FAERS Safety Report 5077887-5 (Version None)
Quarter: 2006Q3

REPORT INFORMATION
  Report Type: 
  Country: None (occurrence: None)
  Receive Date: 20060720
  Receipt Date: 20050608
  Transmission Date: 20061208
  Serious: Yes (Other)
  Sender: FDA-Public Use
  Company Number: 05LE0143

PATIENT
  Age: 75 Year
  Sex: Female

DRUGS (4)
  1. AGGRASTAT [Suspect]
     Indication: ANGINA UNSTABLE
     Dates: start: 20050607, end: 20050607
  2. ENOXAPARIN SODIUM [Suspect]
     Indication: ANGINA UNSTABLE
     Dates: start: 20050607, end: 20050607
  3. CLOPIDOGREL BISULFATE [Suspect]
     Indication: ANGINA UNSTABLE
     Dates: start: 20050607, end: 20050607
  4. ASPIRIN [Suspect]
     Indication: ANGINA UNSTABLE
     Dates: start: 20050607, end: 20050607

REACTIONS (1)
  - GASTROINTESTINAL HAEMORRHAGE [None]
